FAERS Safety Report 6340253-6 (Version None)
Quarter: 2009Q3

REPORT INFORMATION
  Report Type: 
  Country: None (occurrence: None)
  Receive Date: 20090902
  Receipt Date: 20090825
  Transmission Date: 20100115
  Serious: Yes (Hospitalization)
  Sender: FDA-Public Use
  Company Number: 1234MTX09

PATIENT
  Age: 7 Year
  Sex: Female

DRUGS (1)
  1. METHOTREXATE [Suspect]
     Indication: POLYARTHRITIS
     Dosage: 10 MG, QWEEKLY, SC
     Route: 058
     Dates: start: 20051004

REACTIONS (2)
  - ARTHRITIS [None]
  - CONDITION AGGRAVATED [None]
